FAERS Safety Report 25177122 (Version 5)
Quarter: 2025Q3

REPORT INFORMATION
  Report Type: Spontaneous
  Country: US (occurrence: US)
  Receive Date: 20250409
  Receipt Date: 20250717
  Transmission Date: 20251020
  Serious: Yes (Hospitalization, Other)
  Sender: BIOVITRUM
  Company Number: US-BIOVITRUM-2025-US-004781

PATIENT
  Age: 80 Year
  Sex: Male

DRUGS (1)
  1. VONJO [Suspect]
     Active Substance: PACRITINIB
     Indication: Myelofibrosis
     Route: 048
     Dates: start: 20250321

REACTIONS (13)
  - Hypokinesia [Unknown]
  - Thinking abnormal [Unknown]
  - Platelet count abnormal [Unknown]
  - Loss of personal independence in daily activities [Unknown]
  - Throat irritation [Unknown]
  - Blood disorder [Unknown]
  - Confusional state [Unknown]
  - Intentional product misuse [Not Recovered/Not Resolved]
  - Cardiac disorder [Unknown]
  - Angina pectoris [Unknown]
  - Transfusion reaction [Unknown]
  - Hypotension [Unknown]
  - Diarrhoea [Unknown]

NARRATIVE: CASE EVENT DATE: 20250321
